FAERS Safety Report 21191618 (Version 1)
Quarter: 2022Q3

REPORT INFORMATION
  Report Type: Spontaneous
  Country: US (occurrence: US)
  Receive Date: 20220809
  Receipt Date: 20220809
  Transmission Date: 20221027
  Serious: Yes (Other)
  Sender: FDA-Public Use
  Company Number: US-PFIZER INC-PV202200038883

PATIENT
  Age: 49 Year
  Sex: Female

DRUGS (1)
  1. TOFACITINIB CITRATE [Suspect]
     Active Substance: TOFACITINIB CITRATE
     Dosage: 11 MG, 1X/DAY
     Route: 048

REACTIONS (8)
  - Polymyalgia rheumatica [Unknown]
  - Polyarthritis [Unknown]
  - Leukopenia [Unknown]
  - Arthritis [Unknown]
  - Viral rash [Unknown]
  - Therapeutic product effective for unapproved indication [Unknown]
  - Blood test abnormal [Unknown]
  - Joint space narrowing [Unknown]

NARRATIVE: CASE EVENT DATE: 20200617
